FAERS Safety Report 8286796-X (Version None)
Quarter: 2012Q2

REPORT INFORMATION
  Report Type: 
  Country: None (occurrence: None)
  Receive Date: 20120416
  Receipt Date: 20120405
  Transmission Date: 20120825
  Serious: Yes (Other)
  Sender: FDA-Public Use
  Company Number: JP-NOVOPROD-334481

PATIENT
  Age: 57 Year
  Sex: Female
  Weight: 56 kg

DRUGS (6)
  1. VICTOZA [Suspect]
     Dosage: 0.9 MG, QD
     Route: 058
     Dates: end: 20110829
  2. CRESTOR [Concomitant]
     Dosage: UNK
     Route: 048
  3. EVISTA [Concomitant]
     Dosage: UNK
     Route: 048
  4. VICTOZA [Suspect]
     Indication: TYPE 2 DIABETES MELLITUS
     Dosage: 0.6 MG, QD
     Route: 058
     Dates: start: 20101101
  5. GLUFAST [Concomitant]
     Dosage: 5 MG, QD
     Route: 048
  6. ALFAROL [Concomitant]
     Dosage: UNK
     Route: 048

REACTIONS (2)
  - OPTIC NEUROPATHY [None]
  - PAPILLOEDEMA [None]
